FAERS Safety Report 5135373-8 (Version None)
Quarter: 2006Q4

REPORT INFORMATION
  Report Type: 
  Country: None (occurrence: None)
  Receive Date: 20061026
  Receipt Date: 20061017
  Transmission Date: 20070319
  Serious: Yes (Death)
  Sender: FDA-Public Use
  Company Number: JP-BRISTOL-MYERS SQUIBB COMPANY-13546593

PATIENT
  Age: 70 Year
  Sex: Female

DRUGS (4)
  1. VEPESID [Suspect]
     Indication: DIFFUSE LARGE B-CELL LYMPHOMA
     Route: 048
  2. ENDOXAN [Concomitant]
  3. ADRIAMYCIN PFS [Concomitant]
  4. ONCOVIN [Concomitant]

REACTIONS (5)
  - INFECTION [None]
  - PLEURAL EFFUSION [None]
  - PNEUMOTHORAX [None]
  - PYOTHORAX [None]
  - TUMOUR PERFORATION [None]
